FAERS Safety Report 8896305 (Version 1)
Quarter: 2012Q4

REPORT INFORMATION
  Report Type: Spontaneous
  Country: US (occurrence: None)
  Receive Date: 20121106
  Receipt Date: 20121106
  Transmission Date: 20130627
  Serious: Yes (Disabling, Other)
  Sender: FDA-Public Use
  Company Number: None

PATIENT
  Age: 58 Year
  Sex: Female
  Weight: 113.4 kg

DRUGS (1)
  1. SOLU MEDROL [Suspect]
     Indication: BRONCHITIS
     Route: 030
     Dates: start: 20121101, end: 20121101

REACTIONS (6)
  - Myalgia [None]
  - Insomnia [None]
  - Mania [None]
  - Muscle spasms [None]
  - No therapeutic response [None]
  - Movement disorder [None]
